FAERS Safety Report 5950446-5 (Version None)
Quarter: 2008Q4

REPORT INFORMATION
  Report Type: 
  Country: None (occurrence: None)
  Receive Date: 20081112
  Receipt Date: 20081103
  Transmission Date: 20090506
  Serious: Yes (Hospitalization)
  Sender: FDA-Public Use
  Company Number: PHHO2008US13115

PATIENT
  Weight: 61.9 kg

DRUGS (2)
  1. CYCLOSPORINE [Suspect]
     Indication: RENAL TRANSPLANT
     Dosage: 250 MG, BID
     Route: 048
     Dates: start: 20080905
  2. CELLCEPT [Suspect]
     Dosage: 1000 MG, BID
     Route: 048
     Dates: start: 20080905

REACTIONS (2)
  - PYREXIA [None]
  - WOUND COMPLICATION [None]
